FAERS Safety Report 11593539 (Version 1)
Quarter: 2015Q4

REPORT INFORMATION
  Report Type: Spontaneous
  Country: US (occurrence: None)
  Receive Date: 20151002
  Receipt Date: 20151002
  Transmission Date: 20160304
  Serious: No
  Sender: FDA-Public Use
  Company Number: None

PATIENT
  Age: 67 Year
  Sex: Female
  Weight: 61.24 kg

DRUGS (5)
  1. COMPOUNDED T3 [Concomitant]
  2. AYGESTIN [Concomitant]
     Active Substance: NORETHINDRONE ACETATE
  3. ESTRADIOL TRANSDERMAL SYSTEM [Suspect]
     Active Substance: ESTRADIOL
     Indication: MENOPAUSAL SYMPTOMS
     Dosage: 2 PATCHES WEEKLY
     Route: 061
     Dates: start: 20150808, end: 20150822
  4. VIVELLE [Concomitant]
     Active Substance: ESTRADIOL
  5. MULTI-VITAMIN/MINERALS [Concomitant]

REACTIONS (3)
  - Hot flush [None]
  - Product substitution issue [None]
  - Drug ineffective [None]

NARRATIVE: CASE EVENT DATE: 20150808
